FAERS Safety Report 5444816-1 (Version None)
Quarter: 2007Q3

REPORT INFORMATION
  Report Type: 
  Country: None (occurrence: None)
  Receive Date: 20070906
  Receipt Date: 20070327
  Transmission Date: 20080115
  Serious: No
  Sender: FDA-Public Use
  Company Number: A0644850A

PATIENT
  Age: 47 Year
  Sex: Female

DRUGS (3)
  1. REQUIP [Suspect]
     Indication: RESTLESS LEGS SYNDROME
     Route: 048
     Dates: start: 20070115
  2. HIGH BLOOD PRESSURE PILL [Concomitant]
  3. VITAMINS [Concomitant]

REACTIONS (3)
  - DEPRESSION [None]
  - GAMBLING [None]
  - MOOD SWINGS [None]
